FAERS Safety Report 16935404 (Version 20)
Quarter: 2021Q2

REPORT INFORMATION
  Report Type: Report from Study
  Country: KR (occurrence: KR)
  Receive Date: 20191018
  Receipt Date: 20210428
  Transmission Date: 20210716
  Serious: Yes (Death, Hospitalization)
  Sender: FDA-Public Use
  Company Number: KR-ROCHE-2235730

PATIENT
  Age: 77 Year
  Sex: Male
  Weight: 50 kg

DRUGS (75)
  1. CHLORPHENIRAMINE. [Concomitant]
     Active Substance: CHLORPHENIRAMINE
     Route: 042
     Dates: start: 20181221, end: 20181221
  2. CHLORPHENIRAMINE. [Concomitant]
     Active Substance: CHLORPHENIRAMINE
     Route: 042
     Dates: start: 20191010, end: 20191017
  3. GUAIFENESIN. [Concomitant]
     Active Substance: GUAIFENESIN
     Dates: start: 20190810, end: 20190811
  4. DIHYDROCODEINE BITARTRATE [Concomitant]
     Active Substance: DIHYDROCODEINE BITARTRATE
     Dates: start: 20190810, end: 20190811
  5. SOLONDO [Concomitant]
     Active Substance: PREDNISOLONE
     Indication: RASH
     Route: 048
     Dates: start: 20190715, end: 20190731
  6. SOLONDO [Concomitant]
     Active Substance: PREDNISOLONE
     Route: 048
     Dates: start: 20190801, end: 20190819
  7. SOLONDO [Concomitant]
     Active Substance: PREDNISOLONE
     Route: 048
     Dates: start: 20191206, end: 20200205
  8. CALDOLOR [Concomitant]
     Active Substance: IBUPROFEN
     Indication: PNEUMONIA
     Route: 042
     Dates: start: 20190807, end: 20190807
  9. MORPHINE SULFATE. [Concomitant]
     Active Substance: MORPHINE SULFATE
     Indication: ABDOMINAL PAIN
     Route: 048
     Dates: start: 20190814, end: 20190814
  10. L?TIRIZINE [Concomitant]
     Indication: RHINORRHOEA
     Route: 048
     Dates: start: 20200305
  11. GUAIFENESIN. [Concomitant]
     Active Substance: GUAIFENESIN
     Indication: COUGH
     Route: 048
     Dates: start: 20181222, end: 20190103
  12. IBUPROFEN. [Concomitant]
     Active Substance: IBUPROFEN
     Route: 048
     Dates: start: 20191024, end: 20201117
  13. TWYNFORGE [Concomitant]
     Indication: HYPERTENSION
     Dosage: 40/5 MG
     Route: 048
     Dates: start: 2019
  14. ASPIRIN. [Concomitant]
     Active Substance: ASPIRIN
     Route: 048
     Dates: start: 20191007, end: 20191016
  15. MICARDIS [Concomitant]
     Active Substance: TELMISARTAN
     Route: 048
     Dates: start: 20201006, end: 20201007
  16. MUCOSTA [Concomitant]
     Active Substance: REBAMIPIDE
     Route: 048
     Dates: start: 20191011
  17. GLYCERIN. [Concomitant]
     Active Substance: GLYCERIN
     Indication: CONSTIPATION
     Route: 054
     Dates: start: 20191015, end: 20191015
  18. GASTER [Concomitant]
     Active Substance: FAMOTIDINE
     Indication: DYSPEPSIA
     Route: 048
     Dates: start: 20200305
  19. ATEZOLIZUMAB. [Suspect]
     Active Substance: ATEZOLIZUMAB
     Indication: NON-SMALL CELL LUNG CANCER
     Dosage: DATE OF MOST RECENT DOSE PRIOR TO SAE ON 13/OCT/2018 AT 12:25.?ON 30/SEP/2019 AT 13:20 AND 13:50, HE
     Route: 042
     Dates: start: 20181008
  20. TRESTAN [Concomitant]
     Route: 048
     Dates: start: 20191006
  21. IBUPROFEN. [Concomitant]
     Active Substance: IBUPROFEN
     Indication: PAIN IN EXTREMITY
     Route: 048
     Dates: start: 20190103, end: 20190207
  22. ASPIRIN. [Concomitant]
     Active Substance: ASPIRIN
     Indication: HYPERTENSION
     Route: 048
     Dates: end: 20191006
  23. LYRICA [Concomitant]
     Active Substance: PREGABALIN
     Route: 048
     Dates: start: 20200305
  24. SOLONDO [Concomitant]
     Active Substance: PREDNISOLONE
     Indication: PRURITUS
     Route: 048
     Dates: start: 20190708, end: 20190714
  25. EBASTEL [Concomitant]
     Active Substance: EBASTINE
     Indication: RHINORRHOEA
     Route: 048
     Dates: start: 20190801, end: 20191005
  26. EBASTEL [Concomitant]
     Active Substance: EBASTINE
     Route: 048
     Dates: start: 20191006, end: 20200226
  27. NORVASC [Concomitant]
     Active Substance: AMLODIPINE BESYLATE
     Indication: HYPERTENSION
     Route: 048
     Dates: start: 20191007, end: 20191016
  28. GASTER [Concomitant]
     Active Substance: FAMOTIDINE
     Route: 048
     Dates: start: 20191226, end: 20200226
  29. TRIDOL [Concomitant]
     Active Substance: TRAMADOL HYDROCHLORIDE
     Indication: HEADACHE
     Route: 042
     Dates: start: 20200127, end: 20200127
  30. SEPTRIN [Concomitant]
     Active Substance: SULFAMETHOXAZOLE\TRIMETHOPRIM
     Route: 048
     Dates: start: 20191011, end: 20191024
  31. LASIX [Concomitant]
     Active Substance: FUROSEMIDE
     Indication: DYSPNOEA
     Route: 042
     Dates: start: 20201120, end: 20201120
  32. LIDOCAINE. [Concomitant]
     Active Substance: LIDOCAINE
     Route: 042
     Dates: start: 20201118, end: 20201118
  33. DENOGAN [Concomitant]
     Active Substance: PROPACETAMOL HYDROCHLORIDE
     Indication: PYREXIA
     Route: 042
     Dates: start: 20181221, end: 20181221
  34. CHLORPHENIRAMINE MALEATE. [Concomitant]
     Active Substance: CHLORPHENIRAMINE MALEATE
     Indication: COUGH
     Route: 048
     Dates: start: 20181222, end: 20190103
  35. MICARDIS [Concomitant]
     Active Substance: TELMISARTAN
     Indication: HYPERTENSION
     Route: 048
     Dates: start: 20191007, end: 20191016
  36. CHLORPHENIRAMINE MALEATE. [Concomitant]
     Active Substance: CHLORPHENIRAMINE MALEATE
     Route: 042
     Dates: start: 20191009, end: 20191009
  37. MAGMIL S [Concomitant]
     Indication: CONSTIPATION
     Route: 048
     Dates: start: 20191014, end: 20191031
  38. MAGMIL S [Concomitant]
     Route: 048
     Dates: start: 20191014, end: 20191031
  39. LACTICARE ZEMAGIS [Concomitant]
     Indication: PRURITUS
     Route: 061
     Dates: start: 20200702
  40. LIDOCAINE. [Concomitant]
     Active Substance: LIDOCAINE
     Indication: PERICARDIAL DRAINAGE
     Route: 058
     Dates: start: 20201006, end: 20201006
  41. NUCYNTA ER [Concomitant]
     Active Substance: TAPENTADOL HYDROCHLORIDE
     Indication: PAIN
     Route: 048
     Dates: start: 20201118, end: 20201204
  42. HISTAL (SOUTH KOREA) [Concomitant]
     Indication: DYSPEPSIA
     Dosage: 2 TABLETS
     Route: 048
     Dates: start: 20201120, end: 20201120
  43. TRESTAN [Concomitant]
     Indication: DECREASED APPETITE
     Route: 048
     Dates: start: 20181213, end: 20191005
  44. DL?METHYLEPHEDRINE HYDROCHLORIDE [Concomitant]
     Active Substance: METHYLEPHEDRINE HYDROCHLORIDE, (+/-)-
     Indication: COUGH
     Route: 048
     Dates: start: 20181222, end: 20190103
  45. CURAN [Concomitant]
     Active Substance: RANITIDINE HYDROCHLORIDE
     Indication: DYSPEPSIA
     Route: 048
     Dates: start: 20190415, end: 20190906
  46. WINUF PERI [Concomitant]
     Active Substance: AMINO ACIDS\DEXTROSE\ELECTROLYTES NOS\SOYBEAN OIL\VITAMINS
     Route: 042
     Dates: start: 20190807, end: 20190814
  47. SOXINASE [Concomitant]
     Indication: DYSPEPSIA
     Route: 048
     Dates: start: 20190808, end: 20190811
  48. SEROQUEL [Concomitant]
     Active Substance: QUETIAPINE FUMARATE
     Route: 048
     Dates: start: 20191007, end: 20191016
  49. PARIET [Concomitant]
     Active Substance: RABEPRAZOLE SODIUM
     Route: 048
     Dates: start: 20191011
  50. DUPHALAC EASY [Concomitant]
     Active Substance: LACTULOSE
     Indication: CONSTIPATION
     Route: 048
     Dates: start: 20191015, end: 20191024
  51. TRIDOL [Concomitant]
     Active Substance: TRAMADOL HYDROCHLORIDE
     Indication: PAIN
     Route: 042
     Dates: start: 20201006, end: 20201006
  52. PACETA [Concomitant]
     Indication: PAIN
     Route: 042
     Dates: start: 20201119, end: 20201119
  53. DIHYDROCODEINE BITARTRATE [Concomitant]
     Active Substance: DIHYDROCODEINE BITARTRATE
     Indication: COUGH
     Route: 048
     Dates: start: 20181222, end: 20190103
  54. IBUPROFEN. [Concomitant]
     Active Substance: IBUPROFEN
     Route: 048
     Dates: start: 20190326, end: 20191006
  55. TWYNFORGE [Concomitant]
     Indication: HYPERTENSION
     Dosage: 1 TABLET
     Route: 048
     Dates: end: 20191006
  56. LOPERAMIDE [Concomitant]
     Active Substance: LOPERAMIDE
     Indication: DIARRHOEA
     Route: 048
     Dates: start: 20191114, end: 20191118
  57. VENTOLIN [Concomitant]
     Active Substance: ALBUTEROL SULFATE
     Indication: DYSPNOEA
     Route: 055
     Dates: start: 20201003
  58. PLACEBO [Suspect]
     Active Substance: UNSPECIFIED INGREDIENT
     Indication: NON-SMALL CELL LUNG CANCER
     Dosage: DATE OF MOST RECENT DOSE PRIOR TO SAE ON 13/OCT/2018 AT 13:25
     Route: 042
     Dates: start: 20181008
  59. MEGACE [Concomitant]
     Active Substance: MEGESTROL ACETATE
     Indication: DECREASED APPETITE
     Route: 048
     Dates: start: 20180921
  60. DENOGAN [Concomitant]
     Active Substance: PROPACETAMOL HYDROCHLORIDE
     Route: 065
     Dates: start: 20190807, end: 20190814
  61. DL?METHYLEPHEDRINE HYDROCHLORIDE [Concomitant]
     Active Substance: METHYLEPHEDRINE HYDROCHLORIDE, (+/-)-
     Dates: start: 20190810, end: 20190811
  62. SOLONDO [Concomitant]
     Active Substance: PREDNISOLONE
     Route: 048
     Dates: start: 20200313
  63. MOKTIN [Concomitant]
     Dosage: 600 OTHER
     Route: 048
     Dates: start: 20190506, end: 20190507
  64. NORVASC [Concomitant]
     Active Substance: AMLODIPINE BESYLATE
     Route: 048
     Dates: start: 20201006, end: 20201007
  65. L?TIRIZINE [Concomitant]
     Route: 048
     Dates: start: 20200206, end: 20200226
  66. TRIDOL [Concomitant]
     Active Substance: TRAMADOL HYDROCHLORIDE
     Indication: ABDOMINAL PAIN UPPER
     Route: 042
     Dates: start: 20200814, end: 20200814
  67. MACPERAN [Concomitant]
     Active Substance: METOCLOPRAMIDE HYDROCHLORIDE
     Indication: VOMITING
     Route: 042
     Dates: start: 20200127, end: 20200127
  68. LASIX [Concomitant]
     Active Substance: FUROSEMIDE
     Indication: PERICARDIAL EFFUSION
     Route: 042
     Dates: start: 20201006, end: 20201006
  69. TRESTAN [Concomitant]
     Dosage: 1 CAPSULE
     Route: 048
     Dates: start: 20200305
  70. LYRICA [Concomitant]
     Active Substance: PREGABALIN
     Indication: PAIN IN EXTREMITY
     Dosage: 1 CAPSULE
     Route: 048
     Dates: start: 20190415, end: 20200226
  71. SOLONDO [Concomitant]
     Active Substance: PREDNISOLONE
     Route: 048
     Dates: start: 20200521, end: 20200610
  72. SOLONDO [Concomitant]
     Active Substance: PREDNISOLONE
     Route: 048
     Dates: start: 20200723, end: 20201111
  73. EBASTEL [Concomitant]
     Active Substance: EBASTINE
     Route: 048
     Dates: start: 20200305
  74. CHLORPHENIRAMINE MALEATE. [Concomitant]
     Active Substance: CHLORPHENIRAMINE MALEATE
     Route: 042
     Dates: start: 20190507, end: 20190507
  75. CHLORPHENAMINE MALEATE;GUAIFENESIN;METHYLEPHEDRINE HYDROCHLORIDE?DL [Concomitant]
     Dosage: 2  TABLET
     Route: 048
     Dates: start: 20190810, end: 20190811

REACTIONS (4)
  - Rash [Recovered/Resolved]
  - Stomatitis [Not Recovered/Not Resolved]
  - Pneumonia [Not Recovered/Not Resolved]
  - Cholecystitis [Not Recovered/Not Resolved]

NARRATIVE: CASE EVENT DATE: 20181222
